FAERS Safety Report 5405934-7 (Version None)
Quarter: 2007Q3

REPORT INFORMATION
  Report Type: 
  Country: None (occurrence: None)
  Receive Date: 20070802
  Receipt Date: 20070725
  Transmission Date: 20080115
  Serious: Yes (Life-Threatening, Hospitalization)
  Sender: FDA-Public Use
  Company Number: 2007RL000295

PATIENT
  Age: 47 Year
  Sex: Male
  Weight: 124.7392 kg

DRUGS (6)
  1. OMACOR [Suspect]
     Indication: BLOOD TRIGLYCERIDES INCREASED
     Dosage: 1 GM;BID; PO
     Route: 048
     Dates: start: 20070314, end: 20070424
  2. LISINOPRIL [Concomitant]
  3. CRESTOR [Concomitant]
  4. PREVACID [Concomitant]
  5. CITALOPRAM [Concomitant]
  6. GEODON [Concomitant]

REACTIONS (1)
  - PANCREATITIS ACUTE [None]
